FAERS Safety Report 9402848 (Version 1)
Quarter: 2013Q3

REPORT INFORMATION
  Report Type: Spontaneous
  Country: US (occurrence: None)
  Receive Date: 20130715
  Receipt Date: 20130715
  Transmission Date: 20140515
  Serious: Yes (Disabling)
  Sender: FDA-Public Use
  Company Number: None

PATIENT
  Age: 81 Year
  Sex: Female
  Weight: 49.9 kg

DRUGS (1)
  1. FASLODEX [Suspect]
     Indication: BLOOD OESTROGEN ABNORMAL
     Dosage: INJECTION
     Dates: start: 20020313, end: 20130501

REACTIONS (9)
  - Urinary tract infection [None]
  - Inflammation [None]
  - Neoplasm [None]
  - Nerve compression [None]
  - Back pain [None]
  - Flank pain [None]
  - Pain in extremity [None]
  - Grip strength decreased [None]
  - Activities of daily living impaired [None]
